FAERS Safety Report 8392804-8 (Version None)
Quarter: 2012Q2

REPORT INFORMATION
  Report Type: 
  Country: None (occurrence: None)
  Receive Date: 20120529
  Receipt Date: 20120522
  Transmission Date: 20120825
  Serious: No
  Sender: FDA-Public Use
  Company Number: US-ASTRAZENECA-2009UW10206

PATIENT
  Age: 86 Year
  Sex: Female
  Weight: 64.4 kg

DRUGS (15)
  1. NEXIUM [Suspect]
     Route: 048
  2. NEXIUM [Suspect]
     Route: 048
     Dates: start: 20120519
  3. NEXIUM [Suspect]
     Indication: GASTROOESOPHAGEAL REFLUX DISEASE
     Route: 048
     Dates: start: 20050101
  4. NEXIUM [Suspect]
     Route: 048
     Dates: start: 20120201
  5. NEXIUM [Suspect]
     Route: 048
     Dates: start: 20120201
  6. NEXIUM [Suspect]
     Indication: GASTRIC INFECTION
     Route: 048
     Dates: start: 20050101
  7. NEXIUM [Suspect]
     Route: 048
     Dates: start: 20120519
  8. NEXIUM [Suspect]
     Route: 048
     Dates: start: 20120201
  9. NEXIUM [Suspect]
     Route: 048
  10. NEXIUM [Suspect]
     Route: 048
  11. CLINORIL [Suspect]
     Route: 048
  12. MANY PILLS [Concomitant]
  13. NEXIUM [Suspect]
     Route: 048
     Dates: start: 20120519
  14. NEXIUM [Suspect]
     Indication: DYSPEPSIA
     Route: 048
     Dates: start: 20050101
  15. SELEGILINE HCL [Suspect]
     Route: 048

REACTIONS (13)
  - INTENTIONAL DRUG MISUSE [None]
  - MUSCLE SPASMS [None]
  - SPEECH DISORDER [None]
  - STUPOR [None]
  - DIVERTICULITIS [None]
  - ABASIA [None]
  - DIARRHOEA [None]
  - ADVERSE EVENT [None]
  - GASTRIC INFECTION [None]
  - DISCOMFORT [None]
  - HELICOBACTER INFECTION [None]
  - ABDOMINAL DISTENSION [None]
  - MALAISE [None]
